FAERS Safety Report 23667499 (Version 7)
Quarter: 2025Q1

REPORT INFORMATION
  Report Type: Report from Study
  Country: CA (occurrence: CA)
  Receive Date: 20240325
  Receipt Date: 20250107
  Transmission Date: 20250409
  Serious: Yes (Other)
  Sender: TAKEDA
  Company Number: CA-TAKEDA-2023TUS080634

PATIENT
  Age: 24 Year
  Sex: Female

DRUGS (9)
  1. VEDOLIZUMAB [Suspect]
     Active Substance: VEDOLIZUMAB
     Indication: Crohn^s disease
  2. VEDOLIZUMAB [Suspect]
     Active Substance: VEDOLIZUMAB
  3. VEDOLIZUMAB [Suspect]
     Active Substance: VEDOLIZUMAB
     Dosage: 300 MILLIGRAM, Q4WEEKS
     Dates: start: 20240327
  4. VEDOLIZUMAB [Suspect]
     Active Substance: VEDOLIZUMAB
     Dosage: 300 MILLIGRAM, Q4WEEKS
  5. VEDOLIZUMAB [Suspect]
     Active Substance: VEDOLIZUMAB
     Dosage: 300 MILLIGRAM, Q4WEEKS
  6. VEDOLIZUMAB [Suspect]
     Active Substance: VEDOLIZUMAB
     Dosage: 300 MILLIGRAM, Q4WEEKS
  7. VEDOLIZUMAB [Suspect]
     Active Substance: VEDOLIZUMAB
     Dosage: 300 MILLIGRAM, Q4WEEKS
  8. IRON [Concomitant]
     Active Substance: IRON
  9. PANTOPRAZOLE [Concomitant]
     Active Substance: PANTOPRAZOLE

REACTIONS (11)
  - Crohn^s disease [Not Recovered/Not Resolved]
  - Haematochezia [Recovered/Resolved]
  - Diarrhoea [Unknown]
  - Abdominal pain [Recovered/Resolved]
  - Alopecia [Not Recovered/Not Resolved]
  - Frequent bowel movements [Unknown]
  - Therapeutic reaction time decreased [Recovering/Resolving]
  - Off label use [Unknown]
  - Dizziness [Recovering/Resolving]
  - Anal fissure [Unknown]
  - Nausea [Recovering/Resolving]

NARRATIVE: CASE EVENT DATE: 20240327
